FAERS Safety Report 9224698 (Version 1)
Quarter: 2013Q2

REPORT INFORMATION
  Report Type: Spontaneous
  Country: US (occurrence: None)
  Receive Date: 20130409
  Receipt Date: 20130409
  Transmission Date: 20140414
  Serious: Yes (Life-Threatening)
  Sender: FDA-Public Use
  Company Number: None

PATIENT
  Age: 16 Year
  Sex: Female
  Weight: 44.5 kg

DRUGS (1)
  1. AVLANE [Suspect]
     Indication: HYPERSENSITIVITY
     Dosage: 1 PILL ONCE PO
     Route: 048
     Dates: start: 20130408

REACTIONS (3)
  - Urticaria [None]
  - Product substitution issue [None]
  - Reaction to azo-dyes [None]
